FAERS Safety Report 24843103 (Version 4)
Quarter: 2025Q1

REPORT INFORMATION
  Report Type: Spontaneous
  Country: FR (occurrence: FR)
  Receive Date: 20250115
  Receipt Date: 20250312
  Transmission Date: 20250408
  Serious: Yes (Other)
  Sender: AUROBINDO
  Company Number: FR-BIOGARAN-B24002306

PATIENT
  Age: 51 Year
  Sex: Female

DRUGS (7)
  1. VORICONAZOLE [Suspect]
     Active Substance: VORICONAZOLE
     Indication: Liver abscess
     Route: 048
  2. VORICONAZOLE [Suspect]
     Active Substance: VORICONAZOLE
     Indication: Antifungal treatment
     Route: 048
     Dates: start: 202301
  3. VORICONAZOLE [Suspect]
     Active Substance: VORICONAZOLE
     Indication: Fungal infection
     Route: 048
     Dates: start: 202110, end: 202110
  4. CASPOFUNGIN [Suspect]
     Active Substance: CASPOFUNGIN
     Indication: Systemic candida
     Route: 065
     Dates: start: 202107
  5. CASPOFUNGIN [Suspect]
     Active Substance: CASPOFUNGIN
     Indication: Fungaemia
     Route: 065
     Dates: start: 202301
  6. CASPOFUNGIN [Suspect]
     Active Substance: CASPOFUNGIN
     Dates: start: 2021, end: 202112
  7. TACROLIMUS [Concomitant]
     Active Substance: TACROLIMUS
     Indication: Immunosuppression
     Route: 065

REACTIONS (11)
  - Gastric perforation [Unknown]
  - Hepatic artery aneurysm [Unknown]
  - Pathogen resistance [Unknown]
  - Gastrointestinal haemorrhage [Unknown]
  - Fungal disease carrier [Unknown]
  - Hepatic cytolysis [Unknown]
  - Peritonitis [Unknown]
  - Renal aneurysm [Unknown]
  - Intentional product use issue [Unknown]
  - Overdose [Recovered/Resolved]
  - Off label use [Unknown]

NARRATIVE: CASE EVENT DATE: 20211001
